FAERS Safety Report 6202435-3 (Version None)
Quarter: 2009Q2

REPORT INFORMATION
  Report Type: 
  Country: None (occurrence: None)
  Receive Date: 20090518
  Receipt Date: 20090313
  Transmission Date: 20091009
  Serious: No
  Sender: FDA-Public Use
  Company Number: WAES 0903USA02328

PATIENT
  Age: 55 Year
  Sex: Female

DRUGS (3)
  1. JANUVIA [Suspect]
     Indication: TYPE 2 DIABETES MELLITUS
     Dosage: 100 MG/ DAILY/ PO
     Route: 048
     Dates: start: 20090309
  2. SYNTHROID [Concomitant]
  3. VITAMIN D  (UNSPECIFIED) [Concomitant]

REACTIONS (3)
  - LACRIMATION INCREASED [None]
  - SNEEZING [None]
  - UPPER RESPIRATORY TRACT CONGESTION [None]
